FAERS Safety Report 8499718-3 (Version None)
Quarter: 2012Q3

REPORT INFORMATION
  Report Type: 
  Country: None (occurrence: None)
  Receive Date: 20120710
  Receipt Date: 20120629
  Transmission Date: 20120928
  Serious: Yes (Other)
  Sender: FDA-Public Use
  Company Number: JP-VERTEX PHARMACEUTICALS INC.-AE-2012-004099

PATIENT
  Age: 59 Year
  Sex: Female

DRUGS (9)
  1. TELAVIC (TELAPREVIR) [Suspect]
     Route: 048
     Dates: start: 20120311
  2. REBETOL [Concomitant]
     Route: 048
     Dates: start: 20120322, end: 20120323
  3. REBETOL [Concomitant]
     Route: 048
     Dates: start: 20120419
  4. TELAVIC (TELAPREVIR) [Suspect]
     Indication: HEPATITIS C
     Route: 048
     Dates: start: 20120305, end: 20120308
  5. REBETOL [Concomitant]
     Route: 048
     Dates: start: 20120324, end: 20120405
  6. LOXONIN [Concomitant]
     Route: 048
     Dates: start: 20120316, end: 20120405
  7. PEG-INTRON [Concomitant]
     Indication: HEPATITIS C
     Route: 051
     Dates: start: 20120305
  8. REBETOL [Concomitant]
     Indication: HEPATITIS C
     Route: 048
     Dates: start: 20120305, end: 20120321
  9. TELAVIC (TELAPREVIR) [Suspect]
     Route: 048
     Dates: start: 20120309, end: 20120310

REACTIONS (1)
  - DECREASED APPETITE [None]
